FAERS Safety Report 9018873 (Version 3)
Quarter: 2013Q4

REPORT INFORMATION
  Report Type: Report from Study
  Country: BR (occurrence: BR)
  Receive Date: 20130118
  Receipt Date: 20131030
  Transmission Date: 20140711
  Serious: Yes (Hospitalization)
  Sender: FDA-Public Use
  Company Number: BR-B.I. PHARMACEUTICALS,INC./RIDGEFIELD-2013-RU-00040BP

PATIENT
  Age: 75 Year
  Sex: Male
  Weight: 83.9 kg

DRUGS (1)
  1. BI 1744+TIOTROPIUM BROMIDE [Suspect]
     Indication: CHRONIC OBSTRUCTIVE PULMONARY DISEASE
     Route: 055
     Dates: start: 20120719, end: 20130109

REACTIONS (1)
  - Extrasystoles [Recovered/Resolved]
